FAERS Safety Report 11913392 (Version 1)
Quarter: 2016Q1

REPORT INFORMATION
  Report Type: Spontaneous
  Country: US (occurrence: US)
  Receive Date: 20160113
  Receipt Date: 20160113
  Transmission Date: 20160526
  Serious: Yes (Death)
  Sender: FDA-Public Use
  Company Number: US-MALLINCKRODT-T201505957

PATIENT
  Age: 54 Year
  Sex: Female

DRUGS (6)
  1. PAMELOR [Suspect]
     Active Substance: NORTRIPTYLINE HYDROCHLORIDE
     Indication: PRODUCT USED FOR UNKNOWN INDICATION
     Dosage: UNK
     Route: 048
  2. CARBAMAZEPINE. [Suspect]
     Active Substance: CARBAMAZEPINE
  3. LORAZEPAM. [Suspect]
     Active Substance: LORAZEPAM
  4. DIAZEPAM. [Suspect]
     Active Substance: DIAZEPAM
  5. MIRTAZAPINE. [Suspect]
     Active Substance: MIRTAZAPINE
  6. GABAPENTIN. [Suspect]
     Active Substance: GABAPENTIN

REACTIONS (1)
  - Completed suicide [Fatal]
